FAERS Safety Report 17511714 (Version 1)
Quarter: 2020Q1

REPORT INFORMATION
  Report Type: Spontaneous
  Country: US (occurrence: US)
  Receive Date: 20200307
  Receipt Date: 20200307
  Transmission Date: 20200409
  Serious: Yes (Hospitalization, Other)
  Sender: FDA-Public Use
  Company Number: US-AUROBINDO-AUR-APL-2020-010865

PATIENT
  Sex: Male

DRUGS (3)
  1. DEXTROAMPHET SACCHARAT, AMPHET ASPARTATE, DEXTROAMPHET SULFATE AND AMPHET SULFAT [Suspect]
     Active Substance: AMPHETAMINE ASPARTATE\AMPHETAMINE SULFATE\DEXTROAMPHETAMINE SACCHARATE\DEXTROAMPHETAMINE SULFATE
     Indication: ATTENTION DEFICIT/HYPERACTIVITY DISORDER
     Dosage: 10 MILLIGRAM, FOUR TIMES/DAY
     Route: 048
  2. BUMETANIDE. [Suspect]
     Active Substance: BUMETANIDE
     Indication: PRODUCT USED FOR UNKNOWN INDICATION
     Dosage: UNK
     Route: 065
  3. AMIODARONE HYDROCHLORIDE. [Suspect]
     Active Substance: AMIODARONE HYDROCHLORIDE
     Indication: PRODUCT USED FOR UNKNOWN INDICATION
     Dosage: UNK
     Route: 065

REACTIONS (17)
  - Cardiac failure congestive [Unknown]
  - Asthenia [Unknown]
  - Self-medication [Unknown]
  - Cerebrovascular accident [Unknown]
  - Homeless [Unknown]
  - Fatigue [Unknown]
  - Dyspnoea [Unknown]
  - Sunburn [Unknown]
  - General physical health deterioration [Unknown]
  - Cardiac failure [Unknown]
  - Peripheral swelling [Unknown]
  - Gallbladder disorder [Unknown]
  - Blood potassium decreased [Unknown]
  - Skin discolouration [Unknown]
  - Treatment noncompliance [Unknown]
  - Joint swelling [Unknown]
  - Abdominal distension [Unknown]
